FAERS Safety Report 23271937 (Version 1)
Quarter: 2023Q4

REPORT INFORMATION
  Report Type: Spontaneous
  Country: HK (occurrence: HK)
  Receive Date: 20231207
  Receipt Date: 20231207
  Transmission Date: 20240110
  Serious: Yes (Hospitalization)
  Sender: FDA-Public Use
  Company Number: HK-BAYER-2023A175712

PATIENT
  Sex: Female

DRUGS (6)
  1. EYLEA [Suspect]
     Active Substance: AFLIBERCEPT
     Indication: Diabetic retinal oedema
     Dosage: 2 DF, ONCE, LEFT EYES MONTHLY, SOLUTION FOR INJECTION, 40 MG/ML
     Route: 031
  2. EYLEA [Suspect]
     Active Substance: AFLIBERCEPT
     Dosage: 3 DF, ONCE, BOTH EYES MONTHLY, SOLUTION FOR INJECTION, 40 MG/ML
     Route: 031
  3. EYLEA [Suspect]
     Active Substance: AFLIBERCEPT
     Dosage: 2 DF, ONCE, BOTH EYES MONTHLY, SOLUTION FOR INJECTION, 40 MG/ML
     Route: 031
  4. EYLEA [Suspect]
     Active Substance: AFLIBERCEPT
     Dosage: ONCE, BOTH EYES MONTHLY, SOLUTION FOR INJECTION, 40 MG/ML
     Route: 031
  5. EYLEA [Suspect]
     Active Substance: AFLIBERCEPT
     Dosage: ONCE, BOTH EYES EVERY 2 MONTH, SOLUTION FOR INJECTION, 40 MG/ML
     Route: 031
  6. EYLEA [Suspect]
     Active Substance: AFLIBERCEPT
     Dosage: ONCE, BOTH EYES EVERY 3 MONTH, SOLUTION FOR INJECTION, 40 MG/ML
     Route: 031

REACTIONS (4)
  - Hospitalisation [Unknown]
  - Diabetic retinopathy [Unknown]
  - Product prescribing issue [Unknown]
  - Inappropriate schedule of product administration [Unknown]
